FAERS Safety Report 4688528-0 (Version None)
Quarter: 2005Q2

REPORT INFORMATION
  Report Type: 
  Country: None (occurrence: None)
  Receive Date: 20050613
  Receipt Date: 20050601
  Transmission Date: 20051028
  Serious: Yes (Death)
  Sender: FDA-Public Use
  Company Number: GB-JNJFOC-20050600737

PATIENT
  Age: 43 Year
  Sex: Male

DRUGS (6)
  1. REOPRO [Suspect]
     Indication: ACUTE MYOCARDIAL INFARCTION
     Route: 042
  2. CLOPIDOGREL BISULFATE [Concomitant]
     Dosage: 300 MG STAT 75 MG DAILY, ORAL
     Route: 049
  3. ASPIRIN [Concomitant]
     Indication: MYOCARDIAL INFARCTION
     Route: 049
  4. CLEXANE [Concomitant]
     Indication: MYOCARDIAL INFARCTION
     Route: 058
  5. HEPARIN [Concomitant]
     Route: 042
  6. HEPARIN [Concomitant]
     Route: 042

REACTIONS (2)
  - CEREBRAL HAEMORRHAGE [None]
  - THROMBOCYTOPENIA [None]
